FAERS Safety Report 19079544 (Version 1)
Quarter: 2021Q1

REPORT INFORMATION
  Report Type: Spontaneous
  Country: FR (occurrence: FR)
  Receive Date: 20210331
  Receipt Date: 20210331
  Transmission Date: 20210420
  Serious: Yes (Hospitalization)
  Sender: FDA-Public Use
  Company Number: FR-TEVA-2021-FR-1895352

PATIENT
  Age: 57 Year
  Sex: Female

DRUGS (7)
  1. VENLAFAXINE [Concomitant]
     Active Substance: VENLAFAXINE HYDROCHLORIDE
  2. HEMIGOXINE NATIVELLE [Concomitant]
     Active Substance: DIGOXIN
  3. OMEPRAZOLE. [Concomitant]
     Active Substance: OMEPRAZOLE
  4. STRESAM, GELULE [Concomitant]
     Active Substance: ETIFOXINE HYDROCHLORIDE
  5. LEXOMIL [Concomitant]
     Active Substance: BROMAZEPAM
  6. RISPERIDONE. [Concomitant]
     Active Substance: RISPERIDONE
  7. LAMOTRIGINE. [Suspect]
     Active Substance: LAMOTRIGINE
     Indication: DEPRESSION
     Dosage: 100MILLIGRAM
     Route: 048
     Dates: start: 2014

REACTIONS (3)
  - Urinary tract infection [Not Recovered/Not Resolved]
  - Hypogammaglobulinaemia [Not Recovered/Not Resolved]
  - Salmonellosis [Recovered/Resolved]

NARRATIVE: CASE EVENT DATE: 20201109
